FAERS Safety Report 25863486 (Version 1)
Quarter: 2025Q3

REPORT INFORMATION
  Report Type: Report from Study
  Country: US (occurrence: US)
  Receive Date: 20250930
  Receipt Date: 20250930
  Transmission Date: 20251020
  Serious: Yes (Other)
  Sender: MYLAN
  Company Number: US-MYLANLABS-2025M1079006

PATIENT
  Sex: Female
  Weight: 110 kg

DRUGS (2)
  1. APIXABAN [Suspect]
     Active Substance: APIXABAN
     Indication: Embolism venous
     Dosage: 5 MILLIGRAM, BID
  2. ASPIRIN [Concomitant]
     Active Substance: ASPIRIN
     Indication: Embolism venous
     Dosage: 81 MILLIGRAM, QD

REACTIONS (2)
  - Drug ineffective [Unknown]
  - Product dose omission issue [Unknown]
